FAERS Safety Report 18076553 (Version 1)
Quarter: 2020Q3

REPORT INFORMATION
  Report Type: Spontaneous
  Country: US (occurrence: US)
  Receive Date: 20200727
  Receipt Date: 20200727
  Transmission Date: 20201103
  Serious: No
  Sender: FDA-Public Use
  Company Number: US-SEPTODONT-201905592

PATIENT
  Age: 27 Year
  Sex: Female
  Weight: 59 kg

DRUGS (2)
  1. ORAVERSE [Suspect]
     Active Substance: PHENTOLAMINE MESYLATE
     Indication: ANAESTHESIA REVERSAL
     Dosage: ? CARTRIDGE FOR THE MAXILLA AND ? CARTRIDGE IN THE MANDIBLE
     Route: 004
     Dates: start: 20191023, end: 20191023
  2. SEPTOCAINE AND EPINEPHRINE [Suspect]
     Active Substance: ARTICAINE HYDROCHLORIDE\EPINEPHRINE BITARTRATE
     Indication: INFILTRATION ANAESTHESIA
     Dosage: THREE (3) CARTRIDGES OR PORTIONS THEREOF OF THE LOCAL ANESTHETIC
     Route: 004
     Dates: start: 20191023, end: 20191023

REACTIONS (3)
  - Contusion [Recovering/Resolving]
  - Swelling face [Recovering/Resolving]
  - Facial pain [Recovering/Resolving]

NARRATIVE: CASE EVENT DATE: 20191023
